FAERS Safety Report 21068096 (Version 1)
Quarter: 2022Q3

REPORT INFORMATION
  Report Type: Spontaneous
  Country: US (occurrence: US)
  Receive Date: 20220712
  Receipt Date: 20220712
  Transmission Date: 20221026
  Serious: No
  Sender: FDA-Public Use
  Company Number: US-BRISTOL-MYERS SQUIBB COMPANY-2022-063207

PATIENT
  Age: 80 Year
  Sex: Female
  Weight: 53.07 kg

DRUGS (12)
  1. REVLIMID [Suspect]
     Active Substance: LENALIDOMIDE
     Indication: Plasma cell myeloma
     Dosage: ^TWO CAPSULES TWICE WEEKLY AND 1 CAPSULE ON THE REMAINING DAYS OF THE WEEK, 3 WEEKS ON 1 WEEK OFF^
     Route: 048
     Dates: start: 20201124
  2. ACYCLOVIR [Concomitant]
     Active Substance: ACYCLOVIR
  3. DEXAMETHASONE [Concomitant]
     Active Substance: DEXAMETHASONE
  4. LOPERAMIDE [Concomitant]
     Active Substance: LOPERAMIDE
  5. NINLARO [Concomitant]
     Active Substance: IXAZOMIB CITRATE
  6. ONDANSETRON [Concomitant]
     Active Substance: ONDANSETRON
  7. VITAMIN B6 [Concomitant]
     Active Substance: PYRIDOXINE HYDROCHLORIDE
  8. ZINC SULFATE [Concomitant]
     Active Substance: ZINC SULFATE
  9. REGULAR MULTIVITAMINS [Concomitant]
  10. CALCIUM\VITAMIN D [Concomitant]
     Active Substance: CALCIUM\VITAMIN D
  11. CHOLECALCIFEROL [Concomitant]
     Active Substance: CHOLECALCIFEROL
  12. TYLENOL [Concomitant]
     Active Substance: ACETAMINOPHEN

REACTIONS (2)
  - Anaemia [Unknown]
  - Off label use [Unknown]

NARRATIVE: CASE EVENT DATE: 20220101
